FAERS Safety Report 22361272 (Version 2)
Quarter: 2023Q2

REPORT INFORMATION
  Report Type: Spontaneous
  Country: JP (occurrence: JP)
  Receive Date: 20230524
  Receipt Date: 20230601
  Transmission Date: 20230722
  Serious: Yes (Hospitalization)
  Sender: FDA-Public Use
  Company Number: JP-DAIICHI SANKYO, INC.-DSJ-2023-120381

PATIENT

DRUGS (2)
  1. PRASUGREL HYDROCHLORIDE [Suspect]
     Active Substance: PRASUGREL HYDROCHLORIDE
     Indication: Peripheral arterial occlusive disease
     Dosage: UNK
     Route: 065
  2. CILOSTAZOL [Concomitant]
     Active Substance: CILOSTAZOL
     Dosage: UNK
     Route: 065

REACTIONS (2)
  - Peripheral arterial occlusive disease [Unknown]
  - Off label use [Unknown]
